FAERS Safety Report 11326749 (Version 2)
Quarter: 2015Q3

REPORT INFORMATION
  Report Type: Report from Study
  Country: CA (occurrence: CA)
  Receive Date: 20150731
  Receipt Date: 20150821
  Transmission Date: 20151125
  Serious: Yes (Hospitalization)
  Sender: FDA-Public Use
  Company Number: CA-ROCHE-1615123

PATIENT
  Age: 74 Year
  Sex: Male

DRUGS (33)
  1. OBINUTUZUMAB [Suspect]
     Active Substance: OBINUTUZUMAB
     Dosage: DAY 1 EACH CYCLE?MOST RECENT DOSE PRIOR TO EVENT ONSET 04/SEP/2014
     Route: 042
     Dates: start: 20140508
  2. BENDAMUSTINE [Suspect]
     Active Substance: BENDAMUSTINE
     Indication: CHRONIC LYMPHOCYTIC LEUKAEMIA
     Dosage: DAYS 1 + 2 EACH CYCLE
     Route: 042
     Dates: start: 20140410, end: 20140606
  3. TYLENOL [Concomitant]
     Active Substance: ACETAMINOPHEN
     Route: 048
     Dates: start: 20150410, end: 20150410
  4. NORMAL SALINE [Concomitant]
     Active Substance: SODIUM CHLORIDE
     Dosage: 50 HH/CR CONTINUOUS
     Route: 042
     Dates: start: 20150412, end: 20150414
  5. OBINUTUZUMAB [Suspect]
     Active Substance: OBINUTUZUMAB
     Dosage: TREATMENT DELAYED BY 1 DAY DUE TO POSSIBLE TLS
     Route: 042
     Dates: start: 20140412, end: 20140412
  6. BENDAMUSTINE [Suspect]
     Active Substance: BENDAMUSTINE
     Dosage: DOSE REDUCED DUE TO PREVIOUS SAE OF GRADE 4 NEUTROPENIA?DAYS 1 + 2 EACH CYCLE?MOST RECENT DOSE PRIOR
     Route: 042
     Dates: start: 20140710
  7. ZOFRAN [Concomitant]
     Active Substance: ONDANSETRON HYDROCHLORIDE
     Route: 048
     Dates: start: 20140410, end: 20140907
  8. TYLENOL [Concomitant]
     Active Substance: ACETAMINOPHEN
     Dosage: PRE IVIG
     Route: 048
     Dates: start: 20150729
  9. OBINUTUZUMAB [Suspect]
     Active Substance: OBINUTUZUMAB
     Route: 042
     Dates: start: 20140417, end: 20140417
  10. ASA [Concomitant]
     Active Substance: ASPIRIN
     Dosage: ONCE DAILY IF PLATELETS ARE ABOVE 50
     Route: 048
     Dates: start: 1994
  11. DIOVAN [Concomitant]
     Active Substance: VALSARTAN
     Indication: HYPERTENSION
     Route: 048
     Dates: start: 1994, end: 20140410
  12. TECTA [Concomitant]
     Active Substance: PANTOPRAZOLE MAGNESIUM
     Indication: GASTROOESOPHAGEAL REFLUX DISEASE
     Route: 048
     Dates: start: 20140313, end: 20140623
  13. METHYLPREDNISOLONE. [Concomitant]
     Active Substance: METHYLPREDNISOLONE
     Dosage: BEFORE EACH OBINUTUZUMAB INFUSION
     Route: 042
     Dates: start: 20140410, end: 20140412
  14. PIPERACILLIN/TAZOBACTAM [Concomitant]
     Active Substance: PIPERACILLIN SODIUM\TAZOBACTAM SODIUM
     Route: 042
     Dates: start: 20140416, end: 20140416
  15. TUMS [Concomitant]
     Active Substance: CALCIUM CARBONATE
     Route: 048
     Dates: start: 20140411, end: 20140604
  16. ACYCLOVIR. [Concomitant]
     Active Substance: ACYCLOVIR
     Route: 048
     Dates: start: 20140409, end: 20150401
  17. DEXAMETHASONE. [Concomitant]
     Active Substance: DEXAMETHASONE
     Dosage: 30MINS BEFORE BENDAMUSTINE
     Route: 048
     Dates: start: 20140508, end: 20140905
  18. MAXERAN [Concomitant]
     Active Substance: METOCLOPRAMIDE HYDROCHLORIDE
     Route: 048
     Dates: start: 20140814, end: 20140817
  19. BENADRYL [Concomitant]
     Active Substance: DIPHENHYDRAMINE HYDROCHLORIDE
     Dosage: PRE IVIG
     Route: 042
     Dates: start: 20150729
  20. CRESTOR [Concomitant]
     Active Substance: ROSUVASTATIN CALCIUM
     Indication: DYSLIPIDAEMIA
     Route: 048
     Dates: start: 1994
  21. TECTA [Concomitant]
     Active Substance: PANTOPRAZOLE MAGNESIUM
     Route: 048
     Dates: start: 20150728
  22. ALLOPURINOL. [Concomitant]
     Active Substance: ALLOPURINOL
     Route: 048
     Dates: start: 20140408, end: 20140415
  23. BENADRYL [Concomitant]
     Active Substance: DIPHENHYDRAMINE HYDROCHLORIDE
     Indication: PROPHYLAXIS
     Route: 042
     Dates: start: 20150410, end: 20150410
  24. SEPTRA DS [Concomitant]
     Active Substance: SULFAMETHOXAZOLE\TRIMETHOPRIM
     Dosage: TWICE A DAY EVERY MONDAY WEDNESDAY AND FRIDAY
     Route: 048
     Dates: start: 20140409, end: 20150401
  25. ZOFRAN [Concomitant]
     Active Substance: ONDANSETRON HYDROCHLORIDE
     Route: 048
     Dates: start: 20140814, end: 20140817
  26. DIPHENHYDRAMINE. [Concomitant]
     Active Substance: DIPHENHYDRAMINE
     Route: 042
     Dates: start: 20140410, end: 20140904
  27. NORMAL SALINE [Concomitant]
     Active Substance: SODIUM CHLORIDE
     Dosage: 150 HH/CR CONTINUOUS
     Route: 042
     Dates: start: 20150410, end: 20150411
  28. AVAMYS [Concomitant]
     Active Substance: FLUTICASONE FUROATE
     Route: 050
     Dates: start: 20150721
  29. OBINUTUZUMAB [Suspect]
     Active Substance: OBINUTUZUMAB
     Route: 042
     Dates: start: 20140424, end: 20140424
  30. TYLENOL [Concomitant]
     Active Substance: ACETAMINOPHEN
     Indication: PROPHYLAXIS
     Route: 048
     Dates: start: 20140410, end: 20140904
  31. PACKED RED BLOOD CELLS [Concomitant]
     Active Substance: HUMAN RED BLOOD CELL
     Route: 042
     Dates: start: 20140616, end: 20140616
  32. OBINUTUZUMAB [Suspect]
     Active Substance: OBINUTUZUMAB
     Indication: CHRONIC LYMPHOCYTIC LEUKAEMIA
     Route: 042
     Dates: start: 20140410, end: 20140410
  33. AMOXICILLIN. [Concomitant]
     Active Substance: AMOXICILLIN
     Route: 048
     Dates: start: 20150624, end: 20150704

REACTIONS (1)
  - Febrile neutropenia [Recovered/Resolved]

NARRATIVE: CASE EVENT DATE: 20150727
